FAERS Safety Report 15962306 (Version 1)
Quarter: 2019Q1

REPORT INFORMATION
  Report Type: Spontaneous
  Country: US (occurrence: US)
  Receive Date: 20190123
  Receipt Date: 20190123
  Transmission Date: 20190417
  Serious: No
  Sender: FDA-Public Use
  Company Number: None

PATIENT
  Age: 66 Year
  Sex: Female

DRUGS (1)
  1. PROLIA [Suspect]
     Active Substance: DENOSUMAB
     Dates: start: 201801

REACTIONS (2)
  - Rash [None]
  - Vaginal mucosal blistering [None]

NARRATIVE: CASE EVENT DATE: 20190123
